FAERS Safety Report 9472428 (Version 1)
Quarter: 2013Q3

REPORT INFORMATION
  Report Type: Spontaneous
  Country: US (occurrence: None)
  Receive Date: 20130821
  Receipt Date: 20130821
  Transmission Date: 20140515
  Serious: Yes (Disabling)
  Sender: FDA-Public Use
  Company Number: None

PATIENT
  Age: 75 Year
  Sex: Male
  Weight: 95.26 kg

DRUGS (1)
  1. PROLIA [Suspect]
     Dosage: SHOT?AS NEEDED

REACTIONS (4)
  - Muscle spasms [None]
  - Muscle spasms [None]
  - Back pain [None]
  - Activities of daily living impaired [None]
